FAERS Safety Report 9373477 (Version 2)
Quarter: 2013Q3

REPORT INFORMATION
  Report Type: Spontaneous
  Country: US (occurrence: US)
  Receive Date: 20130627
  Receipt Date: 20130718
  Transmission Date: 20140515
  Serious: Yes (Death)
  Sender: FDA-Public Use
  Company Number: US-GILEAD-2013-0077797

PATIENT
  Sex: Female

DRUGS (22)
  1. CAYSTON [Suspect]
     Indication: PSEUDOMONAS INFECTION
     Dosage: 75 MG, TID
     Route: 055
     Dates: start: 20111031, end: 20120927
  2. CAYSTON [Suspect]
     Indication: STAPHYLOCOCCAL INFECTION
  3. COLY-MYCIN M [Concomitant]
     Dosage: 150 MG, QD
     Route: 055
  4. VANCOCIN [Concomitant]
     Dosage: 1.25 G, BID
     Route: 042
  5. ZITHROMAX [Concomitant]
     Dosage: 250 MG, QD
     Route: 048
  6. ZOSYN [Concomitant]
     Dosage: 3.375 G, QID
     Route: 042
  7. ADVAIR [Concomitant]
     Dosage: 1 DF, BID
     Route: 055
  8. ALLEGRA [Concomitant]
     Dosage: 180 MG, QD
     Route: 048
  9. COMBIVENT [Concomitant]
     Dosage: 2 DF, PRN
     Route: 055
  10. FLONASE [Concomitant]
     Dosage: 2 DF, BID
     Route: 045
  11. SINGULAIR [Concomitant]
     Dosage: 10 MG, QD
     Route: 048
  12. PROVENTIL                          /00139501/ [Concomitant]
     Dosage: 1 DF, BID
     Route: 055
  13. PULMOZYME [Concomitant]
     Dosage: 2.5 MG, QD
     Route: 055
  14. LOPRESSOR [Concomitant]
     Dosage: 12.5 MG, BID
     Route: 048
  15. ABILIFY [Concomitant]
     Dosage: 30 MG, QD AT BEDTIME
     Route: 048
  16. SEROQUEL [Concomitant]
     Dosage: 400 MG, QD AT BEDTIME
     Route: 048
  17. WELLBUTRIN XL [Concomitant]
     Dosage: 300 MG, QD
     Route: 048
  18. PORTIA 21 [Concomitant]
     Dosage: 1 DF, QD
     Route: 048
  19. PANCREATIC ENZYMES [Concomitant]
     Dosage: 6 DF, QID
     Route: 048
  20. OMEGA-3                            /01866101/ [Concomitant]
     Dosage: 1 UNK, UNK
     Route: 048
  21. INFLUENZA VACCINE [Concomitant]
     Dosage: 0.5 ML, ONCE
     Route: 030
  22. SODIUM CHLORIDE [Concomitant]
     Dosage: 1 DF, UNK
     Route: 055

REACTIONS (1)
  - Renal failure acute [Fatal]
